FAERS Safety Report 5651273-9 (Version None)
Quarter: 2008Q1

REPORT INFORMATION
  Report Type: 
  Country: None (occurrence: None)
  Receive Date: 20080131
  Receipt Date: 20071003
  Transmission Date: 20080703
  Serious: No
  Sender: FDA-Public Use
  Company Number: US200710003241

PATIENT
  Age: 60 Year
  Sex: Female
  Weight: 105.2 kg

DRUGS (4)
  1. BYETTA [Suspect]
     Indication: TYPE 2 DIABETES MELLITUS
     Dosage: 5 UG, 2/D, SUBCUTANEOUS ; 10 UG, 2/D, SUBCUTANEOUS
     Route: 058
     Dates: start: 20060101, end: 20060101
  2. BYETTA [Suspect]
     Indication: TYPE 2 DIABETES MELLITUS
     Dosage: 5 UG, 2/D, SUBCUTANEOUS ; 10 UG, 2/D, SUBCUTANEOUS
     Route: 058
     Dates: start: 20060101
  3. ATENOLOL [Concomitant]
  4. COLACE (DOCUSATE SODIUM) [Concomitant]

REACTIONS (12)
  - CONTUSION [None]
  - COUGH [None]
  - DECREASED APPETITE [None]
  - DIZZINESS [None]
  - INJECTION SITE BRUISING [None]
  - NASAL CONGESTION [None]
  - NAUSEA [None]
  - PHARYNGEAL OEDEMA [None]
  - PNEUMONIA [None]
  - SINUS CONGESTION [None]
  - SINUSITIS [None]
  - SOMNOLENCE [None]
